FAERS Safety Report 4706471-5 (Version None)
Quarter: 2005Q3

REPORT INFORMATION
  Report Type: 
  Country: None (occurrence: None)
  Receive Date: 20050705
  Receipt Date: 20050427
  Transmission Date: 20060218
  Serious: Yes (Other)
  Sender: FDA-Public Use
  Company Number: FR-GLAXOSMITHKLINE-B0379618A

PATIENT
  Age: 18 Year
  Sex: Male
  Weight: 70 kg

DRUGS (1)
  1. LAMICTAL [Suspect]
     Indication: EPILEPSY
     Dosage: 100MG PER DAY
     Route: 048
     Dates: start: 20041201, end: 20050401

REACTIONS (2)
  - GYNAECOMASTIA [None]
  - PSORIASIS [None]
